FAERS Safety Report 8134409-X (Version None)
Quarter: 2012Q1

REPORT INFORMATION
  Report Type: 
  Country: None (occurrence: None)
  Receive Date: 20120209
  Receipt Date: 20120125
  Transmission Date: 20120608
  Serious: Yes (Other)
  Sender: FDA-Public Use
  Company Number: US-2012-10071

PATIENT
  Age: 11 Year
  Sex: Male

DRUGS (4)
  1. METHOTREXATE [Concomitant]
  2. CYCLOPHOSPHAMIDE [Concomitant]
  3. CYCLOSPORINE [Concomitant]
  4. BUSULFAN [Suspect]
     Indication: STEM CELL TRANSPLANT
     Dosage: UNKNOWN

REACTIONS (6)
  - POLYSEROSITIS [None]
  - ASCITES [None]
  - DYSPNOEA [None]
  - OEDEMA PERIPHERAL [None]
  - HYPOTENSION [None]
  - URINE OUTPUT DECREASED [None]
